FAERS Safety Report 8461236-6 (Version None)
Quarter: 2012Q2

REPORT INFORMATION
  Report Type: 
  Country: None (occurrence: None)
  Receive Date: 20120619
  Receipt Date: 20120619
  Transmission Date: 20120825
  Serious: Yes (Hospitalization, Other)
  Sender: FDA-Public Use
  Company Number: None

PATIENT
  Age: 80 Year
  Sex: Female

DRUGS (1)
  1. LEVAQUIN [Suspect]
     Indication: NASOPHARYNGITIS
     Dosage: 250MG ONCE A DAY PO
     Route: 048
     Dates: start: 20120610, end: 20120617

REACTIONS (9)
  - ABNORMAL DREAMS [None]
  - DECREASED APPETITE [None]
  - ABNORMAL BEHAVIOUR [None]
  - INJURY [None]
  - FALL [None]
  - HALLUCINATION [None]
  - CONFUSIONAL STATE [None]
  - INSOMNIA [None]
  - DIZZINESS [None]
